FAERS Safety Report 11939412 (Version 1)
Quarter: 2016Q1

REPORT INFORMATION
  Report Type: Spontaneous
  Country: CA (occurrence: CA)
  Receive Date: 20160122
  Receipt Date: 20160122
  Transmission Date: 20160526
  Serious: Yes (Hospitalization)
  Sender: FDA-Public Use
  Company Number: CA-TEVA-627514ACC

PATIENT
  Age: 28 Year
  Sex: Female
  Weight: 104 kg

DRUGS (3)
  1. TEVA-CEFALEXIN [Suspect]
     Active Substance: CEPHALEXIN
     Indication: MASTITIS
     Dosage: 500 MILLIGRAM DAILY;
     Route: 048
  2. PMS-HYDROCHLOROTHIAZIDE [Suspect]
     Active Substance: HYDROCHLOROTHIAZIDE
     Indication: HYPERTENSION
     Dosage: 25 MILLIGRAM DAILY;
     Route: 048
  3. IBUPROFEN. [Concomitant]
     Active Substance: IBUPROFEN

REACTIONS (4)
  - Renal impairment [Unknown]
  - Chest pain [Unknown]
  - Asthenia [Unknown]
  - Chest discomfort [Unknown]
